FAERS Safety Report 7455277-5 (Version None)
Quarter: 2011Q2

REPORT INFORMATION
  Report Type: 
  Country: None (occurrence: None)
  Receive Date: 20110503
  Receipt Date: 20110421
  Transmission Date: 20111010
  Serious: Yes (Life-Threatening)
  Sender: FDA-Public Use
  Company Number: CA-SOLVAY-00311002860

PATIENT
  Age: 52 Year
  Sex: Female

DRUGS (2)
  1. CREON 25 CAPSULES [Suspect]
     Indication: PRODUCT USED FOR UNKNOWN INDICATION
     Dosage: DAILY DOSE:  UNKNOWN, SHE OPENED 15 MILLIGRAM (S) CAPSULES, FREQUENCY: TWICE A DAY
     Route: 065
  2. DEXILANT [Suspect]
     Indication: GASTROOESOPHAGEAL REFLUX DISEASE
     Dosage: DAILY DOSE:  UNKNOWN, FREQUENCY: TWICE A DAY
     Route: 048

REACTIONS (3)
  - DRUG ADMINISTRATION ERROR [None]
  - ABDOMINAL DISTENSION [None]
  - DYSPEPSIA [None]
